FAERS Safety Report 4600222-0 (Version None)
Quarter: 2005Q1

REPORT INFORMATION
  Report Type: 
  Country: None (occurrence: None)
  Receive Date: 20050303
  Receipt Date: 20050218
  Transmission Date: 20050727
  Serious: Yes (Hospitalization)
  Sender: FDA-Public Use
  Company Number: 200510145BCC

PATIENT
  Age: 53 Year
  Sex: Male

DRUGS (4)
  1. ALEVE [Suspect]
     Indication: ARTHRALGIA
     Dosage: ORAL
     Route: 048
  2. ALEVE [Suspect]
     Indication: INFLAMMATION
     Dosage: ORAL
     Route: 048
  3. ALEVE [Suspect]
     Indication: PAIN IN EXTREMITY
     Dosage: ORAL
     Route: 048
  4. ADVIL [Concomitant]

REACTIONS (2)
  - CARDIAC DISORDER [None]
  - PALPITATIONS [None]
